FAERS Safety Report 7513259-9 (Version None)
Quarter: 2011Q2

REPORT INFORMATION
  Report Type: 
  Country: None (occurrence: None)
  Receive Date: 20110531
  Receipt Date: 20110516
  Transmission Date: 20111010
  Serious: Yes (Hospitalization)
  Sender: FDA-Public Use
  Company Number: FR-BAYER-2011-043290

PATIENT
  Age: 66 Year

DRUGS (5)
  1. VALSARTAN [Concomitant]
     Dosage: DAILY DOSE 80 MG
  2. AMLODIPINE [Concomitant]
     Dosage: DAILY DOSE 5 MG
  3. SORAFENIB (RAF KINASE INHIBITOR) [Suspect]
     Indication: RENAL CELL CARCINOMA
     Dosage: UNK
     Dates: end: 20110420
  4. BEFIZAL [Concomitant]
     Dosage: DAILY DOSE 200 MG
  5. ASPIRIN [Concomitant]
     Dosage: DAILY DOSE 75 MG

REACTIONS (3)
  - COLITIS [None]
  - ABDOMINAL PAIN [None]
  - DIVERTICULUM INTESTINAL [None]
